FAERS Safety Report 12535816 (Version 1)
Quarter: 2016Q3

REPORT INFORMATION
  Report Type: Spontaneous
  Country: US (occurrence: None)
  Receive Date: 20160706
  Receipt Date: 20160706
  Transmission Date: 20161109
  Serious: No
  Sender: FDA-Public Use
  Company Number: None

PATIENT
  Age: 80 Year
  Sex: Female
  Weight: 69.4 kg

DRUGS (11)
  1. ATORVASTAIN CALCIUM TABLETS [Suspect]
     Active Substance: ATORVASTATIN CALCIUM
     Indication: BLOOD CHOLESTEROL
     Dosage: 1 PILL AT BEDTIME BY MOUTH
     Route: 048
     Dates: end: 20160424
  2. COLACE [Concomitant]
     Active Substance: DOCUSATE SODIUM
  3. OMEGA 3 [Concomitant]
     Active Substance: OMEGA-3 FATTY ACIDS
  4. ANTIVERT [Concomitant]
     Active Substance: MECLIZINE HYDROCHLORIDE
  5. ONE TOUCH ULTRA SYSTEM KIT [Concomitant]
  6. ATIVAN [Concomitant]
     Active Substance: LORAZEPAM
  7. VITAMIN B12 [Concomitant]
     Active Substance: CYANOCOBALAMIN
  8. ZESTRIL [Concomitant]
     Active Substance: LISINOPRIL
  9. CLARITIN [Concomitant]
     Active Substance: LORATADINE
  10. NORVASC [Concomitant]
     Active Substance: AMLODIPINE BESYLATE
  11. ACULAR [Concomitant]
     Active Substance: KETOROLAC TROMETHAMINE

REACTIONS (1)
  - Myalgia [None]
